FAERS Safety Report 4997899-7 (Version None)
Quarter: 2006Q2

REPORT INFORMATION
  Report Type: 
  Country: None (occurrence: None)
  Receive Date: 20060510
  Receipt Date: 20050913
  Transmission Date: 20061013
  Serious: Yes (Hospitalization)
  Sender: FDA-Public Use
  Company Number: FR-BRISTOL-MYERS SQUIBB COMPANY-13110895

PATIENT
  Age: 51 Year
  Sex: Female

DRUGS (5)
  1. HYDREA [Suspect]
     Indication: ESSENTIAL THROMBOCYTHAEMIA
     Route: 048
     Dates: start: 19940101
  2. PLAVIX [Suspect]
     Indication: INFARCTION
     Route: 048
     Dates: start: 19940101
  3. TAHOR [Suspect]
     Indication: INFARCTION
     Route: 048
     Dates: start: 20050801
  4. OMEPRAZOLE [Suspect]
     Route: 048
     Dates: start: 20050801, end: 20050101
  5. ASPIRIN [Concomitant]
     Dates: start: 19940101

REACTIONS (2)
  - BLOOD LACTATE DEHYDROGENASE INCREASED [None]
  - MYOCARDIAL INFARCTION [None]
